FAERS Safety Report 6510641-3 (Version None)
Quarter: 2009Q4

REPORT INFORMATION
  Report Type: 
  Country: None (occurrence: None)
  Receive Date: 20091222
  Receipt Date: 20091012
  Transmission Date: 20100525
  Serious: No
  Sender: FDA-Public Use
  Company Number: US-ASTRAZENECA-2009SE19556

PATIENT
  Age: 66 Year
  Sex: Male
  Weight: 57.2 kg

DRUGS (4)
  1. CRESTOR [Suspect]
     Route: 048
  2. EXFORGE [Concomitant]
     Indication: HYPERTENSION
  3. BISOPROLOL [Concomitant]
     Indication: HYPERTENSION
  4. ZYRTEC [Concomitant]
     Indication: MULTIPLE ALLERGIES

REACTIONS (2)
  - BACK PAIN [None]
  - HEADACHE [None]
